FAERS Safety Report 24318238 (Version 2)
Quarter: 2024Q3

REPORT INFORMATION
  Report Type: Spontaneous
  Country: JP (occurrence: JP)
  Receive Date: 20240913
  Receipt Date: 20240919
  Transmission Date: 20241017
  Serious: Yes (Death, Hospitalization)
  Sender: BAUSCH AND LOMB
  Company Number: JP-BAUSCH-BL-2024-013643

PATIENT
  Age: 81 Year
  Sex: Female

DRUGS (4)
  1. RIFAXIMIN [Suspect]
     Active Substance: RIFAXIMIN
     Indication: Hepatic encephalopathy
     Route: 065
  2. PARITAPREVIR [Concomitant]
     Active Substance: PARITAPREVIR
     Indication: Hepatitis C
     Route: 065
  3. RITONAVIR [Concomitant]
     Active Substance: RITONAVIR
     Indication: Hepatitis C
     Route: 065
  4. OMBITASVIR [Concomitant]
     Active Substance: OMBITASVIR
     Indication: Hepatitis C
     Route: 065

REACTIONS (4)
  - Hepatocellular carcinoma [Fatal]
  - Hepatic failure [Fatal]
  - Hepatic encephalopathy [Recovered/Resolved]
  - Condition aggravated [Recovering/Resolving]
